FAERS Safety Report 14936710 (Version 1)
Quarter: 2018Q2

REPORT INFORMATION
  Report Type: Spontaneous
  Country: IT (occurrence: IT)
  Receive Date: 20180525
  Receipt Date: 20180525
  Transmission Date: 20180711
  Serious: Yes (Hospitalization)
  Sender: FDA-Public Use
  Company Number: IT-CONCORDIA PHARMACEUTICALS INC.-E2B_00011816

PATIENT
  Age: 90 Year
  Sex: Male

DRUGS (10)
  1. LASIX [Concomitant]
     Active Substance: FUROSEMIDE
  2. EUTIROX [Concomitant]
     Active Substance: LEVOTHYROXINE SODIUM
  3. HALCION [Concomitant]
     Active Substance: TRIAZOLAM
  4. PANTOPRAZOLE [Concomitant]
     Active Substance: PANTOPRAZOLE
  5. CORDARONE [Concomitant]
     Active Substance: AMIODARONE HYDROCHLORIDE
  6. LANOXIN [Suspect]
     Active Substance: DIGOXIN
     Indication: CARDIAC FAILURE
     Route: 048
     Dates: start: 20170101, end: 20171025
  7. FOLINA [Concomitant]
     Active Substance: FOLIC ACID
  8. AVODART [Concomitant]
     Active Substance: DUTASTERIDE
  9. CONGESCOR [Concomitant]
     Active Substance: BISOPROLOL
  10. XANAX [Concomitant]
     Active Substance: ALPRAZOLAM

REACTIONS (7)
  - Abdominal pain upper [Unknown]
  - Productive cough [Unknown]
  - Agitation [Unknown]
  - Gravitational oedema [Unknown]
  - Dyspnoea [Unknown]
  - Bradycardia [Unknown]
  - Nausea [Unknown]

NARRATIVE: CASE EVENT DATE: 20171025
